FAERS Safety Report 13868953 (Version 4)
Quarter: 2017Q3

REPORT INFORMATION
  Report Type: Report from Study
  Country: DE (occurrence: DE)
  Receive Date: 20170815
  Receipt Date: 20170915
  Transmission Date: 20171127
  Serious: Yes (Death, Hospitalization, Other)
  Sender: FDA-Public Use
  Company Number: PHHY2017DE118618

PATIENT
  Sex: Female
  Weight: 94 kg

DRUGS (10)
  1. QUETIAPINE. [Concomitant]
     Active Substance: QUETIAPINE
     Indication: PRODUCT USED FOR UNKNOWN INDICATION
     Dosage: 25 MG, UNK
     Route: 065
  2. STELARA [Suspect]
     Active Substance: USTEKINUMAB
     Indication: PSORIASIS
     Dosage: 45 MG, UNK
     Route: 058
     Dates: start: 20160720, end: 20170125
  3. TORASEMID [Concomitant]
     Active Substance: TORSEMIDE
     Indication: PRODUCT USED FOR UNKNOWN INDICATION
     Dosage: 20 MG, UNK (1-1/2-0)
     Route: 065
  4. AMLODIPINE [Concomitant]
     Active Substance: AMLODIPINE BESYLATE
     Indication: PRODUCT USED FOR UNKNOWN INDICATION
     Dosage: 5 MG, UNK
     Route: 065
  5. MIRTAZAPINE. [Concomitant]
     Active Substance: MIRTAZAPINE
     Indication: PRODUCT USED FOR UNKNOWN INDICATION
     Dosage: 45 MG, UNK (0-0-1)
     Route: 065
  6. COSENTYX [Suspect]
     Active Substance: SECUKINUMAB
     Indication: PSORIASIS
     Dosage: 150 MG, UNK
     Route: 058
     Dates: start: 2015, end: 201604
  7. ALDACTONE [Concomitant]
     Active Substance: SPIRONOLACTONE
     Indication: PRODUCT USED FOR UNKNOWN INDICATION
     Dosage: 100 MG, UNK (1-0-0)
     Route: 065
  8. TRAZODONE [Concomitant]
     Active Substance: TRAZODONE HYDROCHLORIDE
     Indication: PRODUCT USED FOR UNKNOWN INDICATION
     Dosage: UNK
     Route: 065
  9. PANTOZOL [Concomitant]
     Active Substance: PANTOPRAZOLE SODIUM
     Indication: PRODUCT USED FOR UNKNOWN INDICATION
     Dosage: 20 MG, UNK (1-0-0)
     Route: 065
  10. VENLAFAXINE [Concomitant]
     Active Substance: VENLAFAXINE HYDROCHLORIDE
     Indication: DEPRESSION
     Dosage: UNK
     Route: 065

REACTIONS (33)
  - Breast cancer metastatic [Fatal]
  - Pleural effusion [Fatal]
  - General physical health deterioration [Fatal]
  - Oedema peripheral [Unknown]
  - Fibrin D dimer increased [Unknown]
  - Abdominal distension [Unknown]
  - Hypertension [Fatal]
  - Headache [Recovered/Resolved]
  - Abdominal pain [Unknown]
  - Tenderness [Unknown]
  - Metastases to peritoneum [Fatal]
  - Pruritus [Fatal]
  - Gastrointestinal sounds abnormal [Fatal]
  - Jaundice [Fatal]
  - Dehydration [Unknown]
  - Dizziness [Unknown]
  - Dyspnoea [Fatal]
  - Hepatic failure [Fatal]
  - Nausea [Fatal]
  - Urinary tract infection [Unknown]
  - Cough [Fatal]
  - Metastases to bone [Fatal]
  - Ascites [Fatal]
  - Somnolence [Unknown]
  - Restrictive pulmonary disease [Not Recovered/Not Resolved]
  - Malignant peritoneal neoplasm [Fatal]
  - Metastases to liver [Fatal]
  - Fatigue [Fatal]
  - Diarrhoea [Fatal]
  - Acute prerenal failure [Fatal]
  - Atelectasis [Unknown]
  - Metastases to pleura [Fatal]
  - Mucosal dryness [Unknown]

NARRATIVE: CASE EVENT DATE: 201511
